FAERS Safety Report 24020611 (Version 2)
Quarter: 2024Q2

REPORT INFORMATION
  Report Type: Spontaneous
  Country: US (occurrence: US)
  Receive Date: 20240627
  Receipt Date: 20240628
  Transmission Date: 20240716
  Serious: Yes (Death)
  Sender: FDA-Public Use
  Company Number: US-INNOVIVA SPECIALTY THERAPEUTICS-2024-INNO-US000043

PATIENT

DRUGS (1)
  1. XACDURO [Suspect]
     Active Substance: DURLOBACTAM SODIUM\SULBACTAM SODIUM
     Indication: Pneumonia bacterial
     Dosage: UNK
     Dates: start: 20240608

REACTIONS (2)
  - Cardiac failure chronic [Fatal]
  - Off label use [Unknown]
